FAERS Safety Report 7489375-7 (Version None)
Quarter: 2011Q2

REPORT INFORMATION
  Report Type: 
  Country: None (occurrence: None)
  Receive Date: 20110518
  Receipt Date: 20110504
  Transmission Date: 20111010
  Serious: Yes (Hospitalization)
  Sender: FDA-Public Use
  Company Number: US-AMGEN-USASP2011023284

PATIENT
  Age: 67 Year
  Sex: Female

DRUGS (1)
  1. ENBREL [Suspect]
     Indication: PSORIASIS
     Dosage: 50 MG, QWK
     Dates: start: 20071124

REACTIONS (6)
  - ARTHROPATHY [None]
  - COUGH [None]
  - GAIT DISTURBANCE [None]
  - ARTHRALGIA [None]
  - LARYNGITIS [None]
  - COORDINATION ABNORMAL [None]
